FAERS Safety Report 4411711-6 (Version None)
Quarter: 2004Q3

REPORT INFORMATION
  Report Type: 
  Country: None (occurrence: None)
  Receive Date: 20040730
  Receipt Date: 20040721
  Transmission Date: 20050211
  Serious: Yes (Other)
  Sender: FDA-Public Use
  Company Number: FR-BRISTOL-MYERS SQUIBB COMPANY-12646949

PATIENT
  Age: 57 Year
  Sex: Male

DRUGS (4)
  1. HYDREA [Suspect]
     Indication: THROMBOCYTHAEMIA
     Route: 048
  2. PRAVASTATIN [Concomitant]
     Indication: PROPHYLAXIS
  3. ASPIRIN [Concomitant]
     Indication: PROPHYLAXIS
  4. SECTRAL [Concomitant]
     Indication: HYPERTENSION

REACTIONS (1)
  - ENTEROCOLITIS HAEMORRHAGIC [None]
